FAERS Safety Report 24557532 (Version 1)
Quarter: 2024Q4

REPORT INFORMATION
  Report Type: Spontaneous
  Country: ES (occurrence: ES)
  Receive Date: 20241028
  Receipt Date: 20241028
  Transmission Date: 20250114
  Serious: Yes (Hospitalization, Other)
  Sender: EPIC PHARM
  Company Number: ES-EPICPHARMA-ES-2024EPCLIT01309

PATIENT
  Age: 31 Year
  Sex: Male

DRUGS (4)
  1. TROPICAMIDE [Suspect]
     Active Substance: TROPICAMIDE
     Indication: Product used for unknown indication
     Route: 042
  2. TROPICAMIDE [Suspect]
     Active Substance: TROPICAMIDE
     Route: 042
  3. METHAMPHETAMINE [Concomitant]
     Active Substance: METHAMPHETAMINE
     Indication: Product used for unknown indication
     Route: 065
  4. MIDOMAFETAMINE [Concomitant]
     Active Substance: MIDOMAFETAMINE
     Indication: Product used for unknown indication
     Route: 065

REACTIONS (2)
  - Drug abuse [Unknown]
  - Substance-induced psychotic disorder [Unknown]
